FAERS Safety Report 10449467 (Version 1)
Quarter: 2014Q3

REPORT INFORMATION
  Report Type: Spontaneous
  Country: JP (occurrence: JP)
  Receive Date: 20140912
  Receipt Date: 20140912
  Transmission Date: 20150326
  Serious: No
  Sender: FDA-Public Use
  Company Number: PHHY2012JP136143

PATIENT
  Sex: Female

DRUGS (4)
  1. TASIGNA [Suspect]
     Active Substance: NILOTINIB
     Dosage: 200 MG, UNK
  2. TASIGNA [Suspect]
     Active Substance: NILOTINIB
     Indication: CHRONIC MYELOID LEUKAEMIA
     Dosage: UNK
     Dates: start: 20120901
  3. SPRYCEL [Suspect]
     Active Substance: DASATINIB
     Dosage: UNK
  4. TASIGNA [Suspect]
     Active Substance: NILOTINIB
     Dosage: 400 MG, UNK
     Dates: start: 201312

REACTIONS (2)
  - Pleural effusion [Unknown]
  - Aspartate aminotransferase increased [Unknown]
